FAERS Safety Report 14690919 (Version 1)
Quarter: 2018Q1

REPORT INFORMATION
  Report Type: Spontaneous
  Country: US (occurrence: US)
  Receive Date: 20180328
  Receipt Date: 20180328
  Transmission Date: 20180509
  Serious: Yes (Death, Life-Threatening, Hospitalization, Other)
  Sender: FDA-Public Use
  Company Number: US-PFIZER INC-2018119406

PATIENT
  Sex: Female

DRUGS (1)
  1. AMIODARONE HCL [Suspect]
     Active Substance: AMIODARONE HYDROCHLORIDE
     Indication: ATRIAL FIBRILLATION
     Dosage: 400 MG, UNK
     Route: 048
     Dates: start: 201308

REACTIONS (7)
  - Renal disorder [Unknown]
  - Loss of personal independence in daily activities [Unknown]
  - Blindness [Unknown]
  - Acute lung injury [Fatal]
  - Product use in unapproved indication [Fatal]
  - Dizziness [Unknown]
  - Renal failure [Fatal]

NARRATIVE: CASE EVENT DATE: 2016
